FAERS Safety Report 6110788-X (Version None)
Quarter: 2009Q1

REPORT INFORMATION
  Report Type: 
  Country: None (occurrence: None)
  Receive Date: 20090311
  Receipt Date: 20090304
  Transmission Date: 20090719
  Serious: Yes (Hospitalization)
  Sender: FDA-Public Use
  Company Number: US-BAYER-200913641NA

PATIENT
  Age: 17 Year
  Sex: Female

DRUGS (4)
  1. YAZ [Suspect]
     Indication: ACNE
     Route: 048
     Dates: start: 20081114, end: 20090212
  2. DUAC ( CLINDAMYCIN/BENZOLY PEROXIDE [Concomitant]
     Indication: ACNE
     Dates: start: 20080501
  3. TAZORAC [Concomitant]
     Indication: ACNE
     Dates: start: 20080101
  4. MINOCYCLINE HCL [Concomitant]
     Indication: ACNE
     Dosage: TOTAL DAILY DOSE: 200 MG
     Dates: start: 20080710

REACTIONS (4)
  - DRUG INEFFECTIVE [None]
  - DYSPNOEA [None]
  - OVARIAN CYST [None]
  - PULMONARY THROMBOSIS [None]
